FAERS Safety Report 12290511 (Version 2)
Quarter: 2016Q2

REPORT INFORMATION
  Report Type: Report from Study
  Country: BR (occurrence: BR)
  Receive Date: 20160421
  Receipt Date: 20160517
  Transmission Date: 20160815
  Serious: No
  Sender: FDA-Public Use
  Company Number: BR-BIOGEN-2015BI151159

PATIENT
  Age: 24 Year
  Sex: Female

DRUGS (2)
  1. AVONEX [Suspect]
     Active Substance: INTERFERON BETA-1A
     Indication: MULTIPLE SCLEROSIS
     Route: 030
     Dates: start: 20130603
  2. AVONEX [Suspect]
     Active Substance: INTERFERON BETA-1A
     Dosage: START DATE: MAR OR MAY 2013 END DATE: 06 WEEKS PREGNANT (APR 2015)
     Route: 030
     Dates: start: 20130603, end: 201504

REACTIONS (1)
  - Pregnancy [Recovered/Resolved]

NARRATIVE: CASE EVENT DATE: 20150220
